FAERS Safety Report 7327779-3 (Version None)
Quarter: 2011Q1

REPORT INFORMATION
  Report Type: 
  Country: None (occurrence: None)
  Receive Date: 20110216
  Receipt Date: 20110210
  Transmission Date: 20110831
  Serious: Yes (Death)
  Sender: FDA-Public Use
  Company Number: 2011SP006656

PATIENT
  Age: 44 Year
  Sex: Female
  Weight: 48.0813 kg

DRUGS (1)
  1. IMPLANON [Suspect]
     Indication: PRODUCT USED FOR UNKNOWN INDICATION
     Dates: start: 20071129

REACTIONS (1)
  - ROAD TRAFFIC ACCIDENT [None]
